FAERS Safety Report 9417678 (Version 1)
Quarter: 2013Q3

REPORT INFORMATION
  Report Type: Spontaneous
  Country: US (occurrence: None)
  Receive Date: 20130722
  Receipt Date: 20130722
  Transmission Date: 20140515
  Serious: Yes (Other)
  Sender: FDA-Public Use
  Company Number: None

PATIENT
  Age: 83 None
  Sex: Female

DRUGS (1)
  1. SENSIPAR [Suspect]
     Indication: RENAL OSTEODYSTROPHY
     Route: 048
     Dates: start: 20130305

REACTIONS (1)
  - Platelet count decreased [None]
